FAERS Safety Report 6932356-X (Version None)
Quarter: 2010Q3

REPORT INFORMATION
  Report Type: 
  Country: None (occurrence: None)
  Receive Date: 20100819
  Receipt Date: 20100810
  Transmission Date: 20110219
  Serious: Yes (Disabling, Other)
  Sender: FDA-Public Use
  Company Number: GB-BAYER-201033385GPV

PATIENT
  Age: 39 Year
  Sex: Female
  Weight: 59 kg

DRUGS (3)
  1. MIRENA [Suspect]
     Indication: PRODUCT USED FOR UNKNOWN INDICATION
     Route: 015
     Dates: start: 20100712, end: 20100715
  2. TESCO HIGH STRENGHT EVENING PRIMROSE OIL [Concomitant]
  3. TESCO MULTIVITAMINS [Concomitant]

REACTIONS (6)
  - AFFECT LABILITY [None]
  - FATIGUE [None]
  - FEELING ABNORMAL [None]
  - PRESYNCOPE [None]
  - PROCEDURAL PAIN [None]
  - TUNNEL VISION [None]
